FAERS Safety Report 5619037-X (Version None)
Quarter: 2008Q1

REPORT INFORMATION
  Report Type: 
  Country: None (occurrence: None)
  Receive Date: 20080207
  Receipt Date: 20080128
  Transmission Date: 20080703
  Serious: Yes (Hospitalization)
  Sender: FDA-Public Use
  Company Number: JP-PFIZER INC-2008007730

PATIENT
  Sex: Male

DRUGS (7)
  1. IRINOTECAN HCL [Suspect]
     Indication: GASTRIC CANCER
     Dosage: DAILY DOSE:80MG/M2-TEXT:95MG/BODY INTERMITTENT (4TIMES)(80MG/M2)
     Route: 042
     Dates: start: 20071001, end: 20071001
  2. IRINOTECAN HCL [Suspect]
     Dosage: DAILY DOSE:95MG
     Route: 042
     Dates: start: 20071022, end: 20071130
  3. MITOMYCIN [Concomitant]
     Indication: GASTRIC CANCER
     Dosage: DAILY DOSE:3MG-FREQ:INTERMITTENT
     Route: 042
     Dates: start: 20071001, end: 20071130
  4. ZANTAC [Concomitant]
     Dosage: DAILY DOSE:150MG
     Route: 048
     Dates: start: 20061108, end: 20080107
  5. ULCERLMIN [Concomitant]
     Route: 048
     Dates: start: 20061108, end: 20080107
  6. GANATON [Concomitant]
     Route: 048
     Dates: start: 20061108, end: 20080107
  7. MAGNESIUM OXIDE [Concomitant]
     Dosage: TEXT:1320 NG (660NG TWICE A DAY)
     Route: 048
     Dates: start: 20070806, end: 20080107

REACTIONS (1)
  - LIVER DISORDER [None]
